FAERS Safety Report 7450569-8 (Version None)
Quarter: 2011Q2

REPORT INFORMATION
  Report Type: 
  Country: None (occurrence: None)
  Receive Date: 20110502
  Receipt Date: 20110418
  Transmission Date: 20111010
  Serious: Yes (Hospitalization)
  Sender: FDA-Public Use
  Company Number: US-CELGENEUS-163-22393-11033468

PATIENT
  Sex: Female

DRUGS (5)
  1. BENICAR [Concomitant]
     Indication: HYPERTENSION
     Dosage: 1
     Route: 065
  2. MAGNESIUM OXIDE [Concomitant]
     Dosage: 20 MILLIEQUIVALENTS
     Route: 065
  3. ISTODAX [Suspect]
     Indication: MYELOFIBROSIS
     Dosage: 28 MILLIGRAM
     Route: 051
     Dates: start: 20110321
  4. K-DUR [Concomitant]
     Dosage: 20 MILLIEQUIVALENTS
     Route: 065
  5. ISTODAX [Suspect]
     Dosage: 28 MILLIGRAM
     Route: 051
     Dates: start: 20101203, end: 20110119

REACTIONS (1)
  - JUGULAR VEIN THROMBOSIS [None]
